FAERS Safety Report 5307140-3 (Version None)
Quarter: 2007Q2

REPORT INFORMATION
  Report Type: 
  Country: None (occurrence: None)
  Receive Date: 20070420
  Receipt Date: 20070420
  Transmission Date: 20071010
  Serious: Yes (Hospitalization, Other)
  Sender: FDA-Public Use
  Company Number: None

PATIENT
  Age: 21 Year
  Sex: Female
  Weight: 49.8957 kg

DRUGS (1)
  1. KENALOG [Suspect]
     Indication: KELOID SCAR

REACTIONS (8)
  - ANAEMIA [None]
  - ANOREXIA [None]
  - BLOOD POTASSIUM DECREASED [None]
  - DEPRESSION [None]
  - INSOMNIA [None]
  - MIGRAINE [None]
  - MUSCLE SPASMS [None]
  - OLIGOMENORRHOEA [None]
